FAERS Safety Report 21883687 (Version 1)
Quarter: 2023Q1

REPORT INFORMATION
  Report Type: Report from Study
  Country: US (occurrence: US)
  Receive Date: 20230119
  Receipt Date: 20230119
  Transmission Date: 20230418
  Serious: No
  Sender: FDA-Public Use
  Company Number: US-ABBVIE-4244241

PATIENT
  Sex: Male

DRUGS (1)
  1. HUMIRA [Suspect]
     Active Substance: ADALIMUMAB
     Indication: Product used for unknown indication
     Dosage: CITRATE FREE ?THE START DATE OF EVENT WAS TAKEN AS 2022.
     Route: 058
     Dates: start: 20220819

REACTIONS (1)
  - Arthralgia [Not Recovered/Not Resolved]
